FAERS Safety Report 8283413-X (Version None)
Quarter: 2012Q2

REPORT INFORMATION
  Report Type: 
  Country: None (occurrence: None)
  Receive Date: 20120413
  Receipt Date: 20120405
  Transmission Date: 20120825
  Serious: Yes (Hospitalization)
  Sender: FDA-Public Use
  Company Number: CA-ABBOTT-12P-028-0922309-00

PATIENT
  Sex: Female

DRUGS (3)
  1. HUMIRA [Suspect]
     Indication: CROHN'S DISEASE
     Dosage: 160 MG (BASELINE)/80 MG (WEEK 2)
     Route: 058
     Dates: start: 20090512, end: 20090911
  2. BENTYLOL [Concomitant]
     Indication: ABDOMINAL PAIN
     Dates: end: 20100101
  3. CALCIUM D3 [Concomitant]
     Indication: MEDICAL DIET
     Dates: end: 20100101

REACTIONS (1)
  - CROHN'S DISEASE [None]
